FAERS Safety Report 24210162 (Version 3)
Quarter: 2024Q4

REPORT INFORMATION
  Report Type: Spontaneous
  Country: US (occurrence: US)
  Receive Date: 20240814
  Receipt Date: 20241008
  Transmission Date: 20250115
  Serious: Yes (Other)
  Sender: ABBVIE
  Company Number: US-ABBVIE-5879469

PATIENT
  Age: 26 Year
  Sex: Female
  Weight: 95.254 kg

DRUGS (2)
  1. LILETTA [Suspect]
     Active Substance: LEVONORGESTREL
     Indication: Product used for unknown indication
     Dosage: TIME INTERVAL: AS NECESSARY: LAST ADMINISTRATION DATE- 2024
     Route: 015
     Dates: start: 20240729
  2. LILETTA [Suspect]
     Active Substance: LEVONORGESTREL
     Dosage: TIME INTERVAL: AS NECESSARY: NEWLY PLACED INTRA-UTERINE DEVICE.
     Route: 015
     Dates: start: 20240802

REACTIONS (1)
  - Uterine dilation and curettage [Unknown]

NARRATIVE: CASE EVENT DATE: 20240802
